FAERS Safety Report 24797318 (Version 1)
Quarter: 2025Q1

REPORT INFORMATION
  Report Type: Spontaneous
  Country: US (occurrence: US)
  Receive Date: 20250102
  Receipt Date: 20250102
  Transmission Date: 20250409
  Serious: No
  Sender: STALLERGENES
  Company Number: US-AIMMUNE THERAPEUTICS, INC.-2024AIMT01219

PATIENT
  Age: 6 Year
  Sex: Male
  Weight: 20.862 kg

DRUGS (9)
  1. PALFORZIA [Suspect]
     Active Substance: PEANUT
     Indication: Food allergy
     Dates: start: 20240610, end: 20240610
  2. PALFORZIA [Suspect]
     Active Substance: PEANUT
     Dosage: 3 MG, 1X/DAY
     Dates: start: 20240620, end: 202407
  3. PALFORZIA [Suspect]
     Active Substance: PEANUT
     Dates: start: 202407, end: 202407
  4. PALFORZIA [Suspect]
     Active Substance: PEANUT
     Dosage: 6 MG, 1X/DAY
     Dates: start: 20240711, end: 202407
  5. PALFORZIA [Suspect]
     Active Substance: PEANUT
     Dates: start: 202407, end: 202407
  6. PALFORZIA [Suspect]
     Active Substance: PEANUT
     Dosage: 12 MG, 1X/DAY
     Dates: start: 20240801, end: 20240814
  7. PALFORZIA [Suspect]
     Active Substance: PEANUT
     Dates: start: 202408, end: 202408
  8. FLUOCINONIDE OIN [Concomitant]
     Indication: Product used for unknown indication
  9. ZYRTEC [Concomitant]
     Active Substance: CETIRIZINE HYDROCHLORIDE
     Indication: Product used for unknown indication

REACTIONS (1)
  - Vomiting [Not Recovered/Not Resolved]

NARRATIVE: CASE EVENT DATE: 20240701
